FAERS Safety Report 7730400-3 (Version None)
Quarter: 2011Q3

REPORT INFORMATION
  Report Type: 
  Country: None (occurrence: None)
  Receive Date: 20110901
  Receipt Date: 20110901
  Transmission Date: 20111222
  Serious: Yes (Hospitalization, Other)
  Sender: FDA-Public Use
  Company Number: None

PATIENT
  Sex: Female
  Weight: 95.2554 kg

DRUGS (1)
  1. DILTIAZEM [Suspect]

REACTIONS (10)
  - HALLUCINATION [None]
  - NERVOUSNESS [None]
  - TREMOR [None]
  - SPEECH DISORDER [None]
  - BLOOD PRESSURE INCREASED [None]
  - MEMORY IMPAIRMENT [None]
  - DYSPNOEA [None]
  - URINARY TRACT INFECTION [None]
  - FEAR [None]
  - CHROMATURIA [None]
